FAERS Safety Report 9800919 (Version 5)
Quarter: 2014Q2

REPORT INFORMATION
  Report Type: Spontaneous
  Country: US (occurrence: US)
  Receive Date: 20140107
  Receipt Date: 20140407
  Transmission Date: 20141212
  Serious: Yes (Hospitalization, Other)
  Sender: FDA-Public Use
  Company Number: US-009507513-1401USA001216

PATIENT
  Age: 72 Year
  Sex: Female
  Weight: 90.25 kg

DRUGS (25)
  1. JANUMET XR [Suspect]
     Indication: DIABETES MELLITUS
     Dosage: TOTAL DAILY DOSE:100/1000 MG, QD
     Route: 048
     Dates: start: 201307, end: 201312
  2. DILAUDID [Concomitant]
     Indication: PAIN
     Dosage: PAIN PUMP(FORMULATION : SOLUTION)
  3. SYNTHROID [Concomitant]
     Indication: HYPOTHYROIDISM
     Dosage: 100 MICROGRAM, QD
     Route: 048
  4. ACETAMINOPHEN (+) HYDROCODONE BITARTRATE [Concomitant]
     Indication: PAIN
     Dosage: 10-325 MG, Q 4-6 HR PRN
  5. PROMETHAZINE HYDROCHLORIDE [Concomitant]
     Indication: NAUSEA
     Dosage: 25 MG, 1-2 TABLETS Q 6 HR PRN
     Route: 048
  6. PROMETHAZINE HYDROCHLORIDE [Concomitant]
     Indication: VOMITING
  7. LEXAPRO [Concomitant]
     Dosage: 20 MG, HS
     Route: 048
  8. FLEXERIL [Concomitant]
     Dosage: 10 MG, HS
     Route: 048
  9. METOPROLOL SUCCINATE [Concomitant]
     Dosage: 50 MG, QD, EXTENDED RELEASE
     Route: 048
  10. BENICAR [Concomitant]
     Dosage: 20 MG, QD
     Route: 048
  11. GABAPENTIN [Concomitant]
     Indication: NEUROPATHY PERIPHERAL
     Dosage: 2 (800 MG TABLETS) QID
     Route: 048
  12. METFORMIN HYDROCHLORIDE [Concomitant]
     Dosage: 500 MG, BID
     Route: 048
  13. INVOKANA [Concomitant]
     Dosage: 100 MG, QD
     Route: 048
  14. PREDNISONE [Concomitant]
     Dosage: 5 MG, 3 TABLETS DAILY
     Route: 048
  15. PRILOSEC [Concomitant]
     Dosage: 20 MG, QD
     Route: 048
  16. ALLOPURINOL [Concomitant]
     Dosage: 300 MG, QD
     Route: 048
  17. CALTRATE (CALCIUM CARBONATE) [Concomitant]
     Dosage: DAILY DOSE: 1500 MG BID
     Route: 048
  18. FOSFREE [Concomitant]
     Dosage: 1 DF, Q12H
  19. KLOR-CON [Concomitant]
     Dosage: 8 MEQ, Q12H
     Route: 048
  20. FUROSEMIDE [Concomitant]
     Dosage: 80 MG, QD
     Route: 048
  21. ACIDOPHILUS [Concomitant]
     Dosage: UNK, PRN
     Route: 048
  22. MAXIMUM D3 [Concomitant]
     Dosage: 10000 UNIT CAPSULE DAILY FOR 5 DAYS
     Route: 048
  23. MAXIMUM D3 [Concomitant]
     Dosage: 10000 UNIT CAPSULE QW
     Route: 048
  24. ASACOL [Concomitant]
     Dosage: 800 MG, BID
     Route: 048
  25. NEURONTIN [Concomitant]
     Indication: NEUROPATHY PERIPHERAL
     Dosage: 800 MG, QID

REACTIONS (20)
  - Adenocarcinoma pancreas [Not Recovered/Not Resolved]
  - Squamous cell carcinoma [Unknown]
  - Renal failure acute [Unknown]
  - Arthrodesis [Unknown]
  - Neuropathy peripheral [Unknown]
  - Intertrigo [Unknown]
  - Dry skin [Unknown]
  - Haemangioma [Unknown]
  - Abdominal pain [Unknown]
  - Acne [Unknown]
  - Benign neoplasm [Unknown]
  - Pyrexia [Unknown]
  - Folliculitis [Unknown]
  - Lentigo [Unknown]
  - Actinic keratosis [Unknown]
  - Dysuria [Unknown]
  - Bile duct stent insertion [Unknown]
  - Headache [Unknown]
  - Depression [Unknown]
  - Confusional state [Unknown]
